FAERS Safety Report 7016527-2 (Version None)
Quarter: 2010Q3

REPORT INFORMATION
  Report Type: 
  Country: None (occurrence: None)
  Receive Date: 20100927
  Receipt Date: 20100922
  Transmission Date: 20110219
  Serious: Yes (Hospitalization)
  Sender: FDA-Public Use
  Company Number: A0836748A

PATIENT
  Age: 65 Year
  Sex: Female
  Weight: 87.7 kg

DRUGS (9)
  1. AVANDIA [Suspect]
     Dosage: 8MG PER DAY
     Route: 048
     Dates: end: 20070628
  2. HYDROCHLOROTHIAZIDE [Concomitant]
  3. PRAVACHOL [Concomitant]
  4. LOTREL [Concomitant]
  5. METFORMIN [Concomitant]
  6. PRILOSEC [Concomitant]
  7. TOPROL-XL [Concomitant]
  8. ASPIRIN [Concomitant]
  9. CLONIDINE [Concomitant]

REACTIONS (2)
  - MYOCARDIAL INFARCTION [None]
  - PANIC ATTACK [None]
